FAERS Safety Report 5132440-X (Version None)
Quarter: 2006Q4

REPORT INFORMATION
  Report Type: 
  Country: None (occurrence: None)
  Receive Date: 20061023
  Receipt Date: 20061011
  Transmission Date: 20070319
  Serious: Yes (Death, Hospitalization)
  Sender: FDA-Public Use
  Company Number: TW-AVENTIS-200620708GDDC

PATIENT
  Age: 61 Year
  Sex: Male
  Weight: 70 kg

DRUGS (7)
  1. TAXOTERE [Suspect]
     Indication: NASOPHARYNGEAL CANCER
     Route: 042
     Dates: start: 20060829, end: 20060926
  2. TAXOTERE [Suspect]
     Indication: NEOPLASM RECURRENCE
     Route: 042
     Dates: start: 20060829, end: 20060926
  3. BETAMETHASONE [Suspect]
     Indication: PROPHYLAXIS
     Route: 042
     Dates: start: 20060829, end: 20060926
  4. DEPAIN                             /00116401/ [Concomitant]
     Indication: PAIN
     Route: 048
     Dates: start: 20060815
  5. TRANSAMIN [Concomitant]
     Indication: EPISTAXIS
     Route: 048
     Dates: start: 20060822
  6. CEPHADOL [Concomitant]
     Indication: DIZZINESS
     Route: 048
     Dates: start: 20060822
  7. NAPROXEN [Concomitant]
     Indication: PAIN
     Route: 048
     Dates: start: 20060822

REACTIONS (6)
  - DIPLOPIA [None]
  - DIZZINESS [None]
  - EPISTAXIS [None]
  - LOSS OF CONSCIOUSNESS [None]
  - REFUSAL OF TREATMENT BY RELATIVE [None]
  - VISION BLURRED [None]
